FAERS Safety Report 5032617-8 (Version None)
Quarter: 2006Q2

REPORT INFORMATION
  Report Type: 
  Country: None (occurrence: None)
  Receive Date: 20060620
  Receipt Date: 20060620
  Transmission Date: 20061013
  Serious: No
  Sender: FDA-Public Use
  Company Number: None

PATIENT
  Age: 74 Year
  Sex: Female
  Weight: 77.1115 kg

DRUGS (2)
  1. DURAGESIC-50 [Suspect]
     Indication: MYOFASCIAL PAIN SYNDROME
     Dosage: 50 MG Q 72 HOURS
     Dates: start: 20030101
  2. DURAGESIC-50 [Suspect]
     Indication: OSTEOARTHRITIS
     Dosage: 50 MG Q 72 HOURS
     Dates: start: 20030101

REACTIONS (3)
  - APPLICATION SITE ERYTHEMA [None]
  - APPLICATION SITE SWELLING [None]
  - PHARMACEUTICAL PRODUCT COMPLAINT [None]
